FAERS Safety Report 5883894-2 (Version None)
Quarter: 2008Q3

REPORT INFORMATION
  Report Type: 
  Country: None (occurrence: None)
  Receive Date: 20080915
  Receipt Date: 20080905
  Transmission Date: 20090109
  Serious: Yes (Congenital Anomaly)
  Sender: FDA-Public Use
  Company Number: A0747577A

PATIENT

DRUGS (1)
  1. PAXIL [Suspect]
     Indication: BIPOLAR DISORDER

REACTIONS (4)
  - AORTIC STENOSIS [None]
  - DRUG EXPOSURE DURING PREGNANCY [None]
  - HEART DISEASE CONGENITAL [None]
  - PULMONARY VALVE STENOSIS [None]
